FAERS Safety Report 17270431 (Version 4)
Quarter: 2020Q2

REPORT INFORMATION
  Report Type: Report from Study
  Country: FR (occurrence: FR)
  Receive Date: 20200114
  Receipt Date: 20200619
  Transmission Date: 20200713
  Serious: Yes (Other)
  Sender: FDA-Public Use
  Company Number: FR-ASTRAZENECA-2020SE03127

PATIENT
  Age: 836 Month
  Sex: Female
  Weight: 85 kg

DRUGS (6)
  1. CYP3A4 INHIBITOR [Concomitant]
  2. LYNPARZA [Suspect]
     Active Substance: OLAPARIB
     Indication: OVARIAN CANCER
     Route: 048
     Dates: start: 20200106, end: 20200114
  3. LYNPARZA [Suspect]
     Active Substance: OLAPARIB
     Indication: OVARIAN CANCER
     Route: 048
     Dates: start: 20191030
  4. LYNPARZA [Suspect]
     Active Substance: OLAPARIB
     Indication: OVARIAN CANCER
     Route: 048
     Dates: start: 20200115
  5. CARBOPLATIN. [Concomitant]
     Active Substance: CARBOPLATIN
     Dates: start: 20190122, end: 20190122
  6. PACLITAXEL. [Concomitant]
     Active Substance: PACLITAXEL
     Dates: start: 20190122, end: 20190122

REACTIONS (7)
  - Haematocrit decreased [Unknown]
  - Red blood cell count decreased [Not Recovered/Not Resolved]
  - Mean cell volume increased [Not Recovered/Not Resolved]
  - Renal failure [Not Recovered/Not Resolved]
  - Platelet count decreased [Unknown]
  - Fluid intake reduced [Unknown]
  - Haemoglobin decreased [Unknown]

NARRATIVE: CASE EVENT DATE: 201912
